FAERS Safety Report 10223746 (Version 1)
Quarter: 2014Q2

REPORT INFORMATION
  Report Type: Report from Study
  Country: BR (occurrence: BR)
  Receive Date: 20140609
  Receipt Date: 20140609
  Transmission Date: 20141212
  Serious: Yes (Hospitalization)
  Sender: FDA-Public Use
  Company Number: BR-US-EMD SERONO, INC.-7295987

PATIENT
  Age: 43 Year
  Sex: Female

DRUGS (5)
  1. REBIF [Suspect]
     Indication: MULTIPLE SCLEROSIS
     Dates: start: 20130418
  2. REBIF [Suspect]
     Dates: start: 20140519
  3. EUTHYROX [Concomitant]
     Indication: HYPOTHYROIDISM
  4. ZETIA [Concomitant]
     Indication: BLOOD CHOLESTEROL ABNORMAL
  5. TYLENOL                            /00020001/ [Concomitant]
     Indication: PAIN

REACTIONS (1)
  - Appendix disorder [Recovered/Resolved]
